FAERS Safety Report 10214046 (Version 1)
Quarter: 2014Q2

REPORT INFORMATION
  Report Type: Spontaneous
  Country: US (occurrence: None)
  Receive Date: 20140602
  Receipt Date: 20140602
  Transmission Date: 20141212
  Serious: Yes (Disabling, Other)
  Sender: FDA-Public Use
  Company Number: None

PATIENT
  Age: 77 Year
  Sex: Female
  Weight: 97.52 kg

DRUGS (17)
  1. BENICAR [Suspect]
     Indication: HYPERTENSION
     Route: 048
     Dates: start: 2004, end: 2005
  2. MAPAP  (ACETAMINOPHEN) [Concomitant]
  3. DOCUSATE SODIUM (COLACE) [Concomitant]
  4. RED YEAST RICE [Concomitant]
  5. MENTHOL (TOPICAL ANALGESIC) [Concomitant]
  6. VALSARTAN [Concomitant]
  7. METOPROLOL [Concomitant]
  8. ASPIRIN [Concomitant]
  9. GABAPENTIN [Concomitant]
  10. KELP [Concomitant]
  11. ACETIC ACID [Concomitant]
  12. CALCIUM-VITAMIN D [Concomitant]
  13. POLYETHYLENE GLYCOL [Concomitant]
  14. CYANOCOBALAMIN [Concomitant]
  15. NIFEDIPINE [Concomitant]
  16. POLYVINYL ALCOHOL-POVIDONE [Concomitant]
  17. SODIUM CHLORIDE [Concomitant]

REACTIONS (2)
  - Arthralgia [None]
  - Unevaluable event [None]
